FAERS Safety Report 25832553 (Version 1)
Quarter: 2025Q3

REPORT INFORMATION
  Report Type: Spontaneous
  Country: US (occurrence: US)
  Receive Date: 20250922
  Receipt Date: 20250922
  Transmission Date: 20251021
  Serious: No
  Sender: BAYER HEALTHCARE LLC
  Company Number: US-BAYER-2025A121773

PATIENT
  Age: 76 Year
  Sex: Female

DRUGS (2)
  1. ASTEPRO [Suspect]
     Active Substance: AZELASTINE HYDROCHLORIDE
     Indication: Cold urticaria
     Route: 045
     Dates: start: 20250910, end: 20250912
  2. ASTEPRO ALLERGY [Suspect]
     Active Substance: AZELASTINE HYDROCHLORIDE
     Indication: Cold urticaria

REACTIONS (4)
  - Pyrexia [Recovered/Resolved]
  - Chills [Recovered/Resolved]
  - Headache [Recovered/Resolved]
  - Viral infection [Recovered/Resolved]

NARRATIVE: CASE EVENT DATE: 20250910
